FAERS Safety Report 16258420 (Version 7)
Quarter: 2020Q2

REPORT INFORMATION
  Report Type: Report from Study
  Country: US (occurrence: US)
  Receive Date: 20190430
  Receipt Date: 20200511
  Transmission Date: 20200713
  Serious: Yes (Hospitalization, Other)
  Sender: FDA-Public Use
  Company Number: US-ACTELION-A-NJ2019-188438

PATIENT
  Age: 51 Year
  Sex: Female
  Weight: 90.25 kg

DRUGS (3)
  1. TADALAFIL. [Suspect]
     Active Substance: TADALAFIL
     Indication: PRODUCT USED FOR UNKNOWN INDICATION
     Route: 065
  2. ELIQUIS [Concomitant]
     Active Substance: APIXABAN
  3. OPSUMIT [Suspect]
     Active Substance: MACITENTAN
     Indication: PULMONARY HYPERTENSION
     Dosage: 10 MG, QD
     Route: 048
     Dates: start: 20160727

REACTIONS (32)
  - Sickle cell anaemia with crisis [Unknown]
  - Palpitations [Unknown]
  - Headache [Unknown]
  - Dyspnoea [Recovering/Resolving]
  - Dyspnoea exertional [Not Recovered/Not Resolved]
  - Presyncope [Unknown]
  - Pain [Unknown]
  - Pyrexia [Unknown]
  - Chronic disease [Unknown]
  - Transfusion [Unknown]
  - Muscular weakness [Unknown]
  - Vomiting [Unknown]
  - Fatigue [Unknown]
  - Dyspnoea at rest [Not Recovered/Not Resolved]
  - Chest pain [Unknown]
  - Oxygen saturation decreased [Not Recovered/Not Resolved]
  - Pulmonary oedema [Recovering/Resolving]
  - Chest discomfort [Not Recovered/Not Resolved]
  - Swelling [Unknown]
  - Product dose omission [Unknown]
  - Thermal burn [Unknown]
  - Viral infection [Recovering/Resolving]
  - Dizziness [Unknown]
  - Nausea [Unknown]
  - Pruritus [Unknown]
  - Hypoaesthesia [Unknown]
  - Joint range of motion decreased [Unknown]
  - Groin pain [Unknown]
  - Pulmonary embolism [Recovered/Resolved]
  - Peripheral swelling [Recovered/Resolved]
  - Asthenia [Unknown]
  - Unevaluable event [Unknown]

NARRATIVE: CASE EVENT DATE: 201811
